FAERS Safety Report 9877019 (Version 2)
Quarter: 2014Q1

REPORT INFORMATION
  Report Type: Spontaneous
  Country: US (occurrence: US)
  Receive Date: 20140206
  Receipt Date: 20140206
  Transmission Date: 20141002
  Serious: No
  Sender: FDA-Public Use
  Company Number: US-PFIZER INC-2013295981

PATIENT
  Age: 52 Year
  Sex: Female

DRUGS (9)
  1. NORVASC [Suspect]
     Indication: CORONARY ARTERY DISEASE
     Dosage: 5 MG, 2X/DAY
     Route: 048
     Dates: start: 20140102
  2. NITROSTAT [Concomitant]
     Dosage: UNK
  3. TYLENOL PM [Concomitant]
     Dosage: UNK
  4. IMDUR [Concomitant]
     Dosage: UNK
  5. CLONAZEPAM [Concomitant]
     Dosage: UNK
  6. ASPIRIN [Concomitant]
     Dosage: UNK
  7. MEVACOR [Concomitant]
     Dosage: UNK
  8. B-12 [Concomitant]
     Dosage: UNK
  9. PLAVIX [Concomitant]
     Dosage: UNK

REACTIONS (1)
  - Oedema peripheral [Unknown]
